FAERS Safety Report 8221359 (Version 2)
Quarter: 2013Q1

REPORT INFORMATION
  Report Type: Report from Study
  Country: None (occurrence: DE)
  Receive Date: 20111102
  Receipt Date: 20130104
  Transmission Date: 20140127
  Serious: Yes (Hospitalization)
  Sender: FDA-Public Use
  Company Number: DE-BAXTER-2011BH034071

PATIENT
  Age: 66 Year
  Sex: Male
  Weight: 72 kg

DRUGS (5)
  1. CYCLOPHOSPHAMID [Suspect]
     Indication: CHRONIC LYMPHOCYTIC LEUKAEMIA
     Route: 042
     Dates: start: 20110112, end: 20110114
  2. CYCLOPHOSPHAMID [Suspect]
     Dosage: HALF THE DOSAGE
     Route: 042
  3. RITUXIMAB [Suspect]
     Indication: CHRONIC LYMPHOCYTIC LEUKAEMIA
     Route: 042
     Dates: start: 20110111, end: 201104
  4. FLUDARABINE [Suspect]
     Indication: CHRONIC LYMPHOCYTIC LEUKAEMIA
     Route: 042
     Dates: start: 20110112, end: 20110114
  5. FLUDARABINE [Suspect]
     Dosage: HALF THE DOSAGE
     Route: 042

REACTIONS (6)
  - Sepsis [Recovered/Resolved]
  - Neutropenia [Recovered/Resolved]
  - Febrile neutropenia [Recovered/Resolved]
  - Prerenal failure [Unknown]
  - Infection [Recovered/Resolved]
  - Gastrointestinal disorder [Recovered/Resolved]
